FAERS Safety Report 21314426 (Version 1)
Quarter: 2022Q3

REPORT INFORMATION
  Report Type: Report from Study
  Country: US (occurrence: US)
  Receive Date: 20220909
  Receipt Date: 20220909
  Transmission Date: 20221027
  Serious: Yes (Other)
  Sender: FDA-Public Use
  Company Number: US-TAKEDA-US202004724

PATIENT
  Age: 59 Year
  Sex: Female

DRUGS (1)
  1. HUMAN IMMUNOGLOBULIN G [Suspect]
     Active Substance: HUMAN IMMUNOGLOBULIN G
     Indication: Primary immunodeficiency syndrome
     Dosage: 16 GRAM, 1X/WEEK
     Route: 065

REACTIONS (12)
  - Diabetes mellitus [Unknown]
  - Malaise [Unknown]
  - Administration site bruise [Unknown]
  - Lymphocyte count increased [Unknown]
  - Blood immunoglobulin G decreased [Unknown]
  - Inability to afford medication [Unknown]
  - Sinusitis [Unknown]
  - Ear infection [Unknown]
  - Lymphadenopathy [Unknown]
  - Fungal infection [Unknown]
  - Cough [Unknown]
  - Headache [Unknown]

NARRATIVE: CASE EVENT DATE: 20200318
